FAERS Safety Report 6081021-2 (Version None)
Quarter: 2009Q1

REPORT INFORMATION
  Report Type: 
  Country: None (occurrence: None)
  Receive Date: 20090217
  Receipt Date: 20090209
  Transmission Date: 20090719
  Serious: No
  Sender: FDA-Public Use
  Company Number: US-B.I. PHARMACEUTICALS,INC./RIDGEFIELD-2009-BP-00889BP

PATIENT
  Age: 64 Year
  Sex: Female

DRUGS (4)
  1. ZANTAC 150 [Suspect]
     Indication: DYSPEPSIA
     Dosage: 300MG
     Route: 048
     Dates: start: 20090120
  2. ZANTAC 150 [Suspect]
  3. PRILOSEC [Suspect]
     Indication: DYSPEPSIA
  4. ESTRADIOL [Concomitant]

REACTIONS (1)
  - CONSTIPATION [None]
